FAERS Safety Report 15313827 (Version 1)
Quarter: 2018Q4

REPORT INFORMATION
  Report Type: Report from Study
  Country: ES (occurrence: ES)
  Receive Date: 20180824
  Receipt Date: 20180824
  Transmission Date: 20190204
  Serious: Yes (Hospitalization)
  Sender: FDA-Public Use
  Company Number: ES-TEVA-2018-ES-946657

PATIENT
  Age: 41 Year
  Sex: Male
  Weight: 148 kg

DRUGS (6)
  1. ONDANSETRON (2575A) [Suspect]
     Active Substance: ONDANSETRON
     Dosage: 24 MILLIGRAM DAILY;
     Route: 042
     Dates: start: 20170731, end: 20170905
  2. METOCLOPRAMIDA (1958A) [Suspect]
     Active Substance: METOCLOPRAMIDE HYDROCHLORIDE
     Indication: NAUSEA
     Dosage: 30 MILLIGRAM DAILY;
     Route: 042
     Dates: start: 20170730, end: 20170831
  3. CLOXACILINA (89A) [Suspect]
     Active Substance: CLOXACILLIN
     Indication: BACTERAEMIA
     Dosage: 12 GRAM DAILY;
     Route: 042
     Dates: start: 20170817, end: 20170901
  4. VANCOMICINA (3197A) [Suspect]
     Active Substance: VANCOMYCIN
     Indication: BACTERAEMIA
     Dosage: 2 GRAM DAILY;
     Route: 042
     Dates: start: 20170818, end: 20170830
  5. PANTOPRAZOL (7275A) [Suspect]
     Active Substance: PANTOPRAZOLE
     Dosage: 80 MILLIGRAM DAILY;
     Route: 042
     Dates: start: 20170731, end: 20170901
  6. RANITIDINA (2A) [Suspect]
     Active Substance: RANITIDINE
     Dosage: 100 MILLIGRAM DAILY;
     Route: 048
     Dates: start: 20170811, end: 20170905

REACTIONS (1)
  - Drug reaction with eosinophilia and systemic symptoms [Recovered/Resolved]

NARRATIVE: CASE EVENT DATE: 20170902
